FAERS Safety Report 16015363 (Version 1)
Quarter: 2019Q1

REPORT INFORMATION
  Report Type: Spontaneous
  Country: CN (occurrence: CN)
  Receive Date: 20190228
  Receipt Date: 20190228
  Transmission Date: 20190418
  Serious: Yes (Other)
  Sender: FDA-Public Use
  Company Number: CN-BAXTER-2019BAX003943

PATIENT
  Sex: Male
  Weight: 70 kg

DRUGS (6)
  1. HOLOXAN [Suspect]
     Active Substance: IFOSFAMIDE
     Indication: LUNG NEOPLASM MALIGNANT
     Dosage: DILUTED WITH 500 ML OF NORMAL SALINE
     Route: 041
     Dates: start: 20181027, end: 20181030
  2. VP16 [Suspect]
     Active Substance: ETOPOSIDE
     Indication: LUNG NEOPLASM MALIGNANT
     Dosage: DILUTED WITH 500 ML OF NORMAL SALINE
     Route: 041
     Dates: start: 20181027, end: 20181030
  3. HOLOXAN [Suspect]
     Active Substance: IFOSFAMIDE
     Indication: BONE CANCER
  4. VP16 [Suspect]
     Active Substance: ETOPOSIDE
     Indication: BONE CANCER
  5. 0.9% SODIUM CHLORIDE INJECTION [Suspect]
     Active Substance: SODIUM CHLORIDE
     Indication: MEDICATION DILUTION
     Dosage: DILUTED WITH 5.5 GRAM OF IFOSFAMIDE
     Route: 041
     Dates: start: 20181027, end: 20181030
  6. 0.9% SODIUM CHLORIDE INJECTION [Suspect]
     Active Substance: SODIUM CHLORIDE
     Dosage: DILUTED WITH 138 MG OF VP16
     Route: 041
     Dates: start: 20181027, end: 20181030

REACTIONS (1)
  - Bone marrow failure [Recovering/Resolving]

NARRATIVE: CASE EVENT DATE: 20181105
